FAERS Safety Report 5909264-6 (Version None)
Quarter: 2008Q4

REPORT INFORMATION
  Report Type: 
  Country: None (occurrence: None)
  Receive Date: 20081001
  Receipt Date: 20080916
  Transmission Date: 20090506
  Serious: Yes (Hospitalization)
  Sender: FDA-Public Use
  Company Number: 2008S1016891

PATIENT
  Age: 41 Year
  Sex: Male
  Weight: 55 kg

DRUGS (5)
  1. OMEPRAZOLE [Suspect]
     Indication: DYSPEPSIA
     Dosage: 40 MG; TWICE A DAY;
     Dates: start: 20080815
  2. VORICONAZOLE (VORICONAZOLE) [Suspect]
     Indication: GASTROINTESTINAL CANDIDIASIS
     Dosage: 200 MG; ONCE;
  3. FLUCONAZOLE [Concomitant]
  4. ITRACONAZOLE [Concomitant]
  5. DOMPERIDONE [Concomitant]

REACTIONS (7)
  - COLLAPSE OF LUNG [None]
  - DRUG INTERACTION [None]
  - DRUG LEVEL INCREASED [None]
  - LEFT VENTRICULAR FAILURE [None]
  - NEUTROPENIA [None]
  - PERICARDIAL EFFUSION [None]
  - SUPRAVENTRICULAR TACHYCARDIA [None]
